FAERS Safety Report 18365977 (Version 12)
Quarter: 2023Q4

REPORT INFORMATION
  Report Type: Spontaneous
  Country: US (occurrence: US)
  Receive Date: 20201009
  Receipt Date: 20231215
  Transmission Date: 20240110
  Serious: Yes (Other)
  Sender: FDA-Public Use
  Company Number: US-PFIZER INC-2020296502

PATIENT
  Age: 66 Year
  Sex: Female
  Weight: 82.55 kg

DRUGS (4)
  1. XELJANZ XR [Suspect]
     Active Substance: TOFACITINIB CITRATE
     Indication: Rheumatoid arthritis
     Dosage: 11 MG, 1X/DAY
     Dates: start: 202004, end: 20200502
  2. XELJANZ XR [Suspect]
     Active Substance: TOFACITINIB CITRATE
     Dosage: 11 MG
  3. METHOTREXATE SODIUM [Concomitant]
     Active Substance: METHOTREXATE SODIUM
     Dosage: 2.5 MG, WEEKLY
     Dates: start: 2020, end: 2020
  4. METHOTREXATE SODIUM [Concomitant]
     Active Substance: METHOTREXATE SODIUM
     Dosage: 2.5 MG, WEEKLY (8 TABLETS)
     Dates: start: 2020

REACTIONS (18)
  - Suicidal ideation [Unknown]
  - Fall [Unknown]
  - Shoulder fracture [Unknown]
  - Venous thrombosis limb [Unknown]
  - Pulmonary thrombosis [Unknown]
  - Arthralgia [Unknown]
  - Movement disorder [Unknown]
  - Pain in extremity [Unknown]
  - Pain [Not Recovered/Not Resolved]
  - Condition aggravated [Unknown]
  - Confusional state [Unknown]
  - Rash [Unknown]
  - Stress [Unknown]
  - Pruritus [Unknown]
  - Body height decreased [Unknown]
  - Intentional dose omission [Unknown]
  - Product dose omission issue [Unknown]
  - Product dose omission in error [Unknown]

NARRATIVE: CASE EVENT DATE: 20200427
